FAERS Safety Report 8861306 (Version 3)
Quarter: 2013Q1

REPORT INFORMATION
  Report Type: Spontaneous
  Country: US (occurrence: US)
  Receive Date: 20121026
  Receipt Date: 20130204
  Transmission Date: 20140127
  Serious: No
  Sender: FDA-Public Use
  Company Number: US-PFIZER INC-2012264661

PATIENT
  Age: 42 Year
  Sex: Female
  Weight: 83 kg

DRUGS (7)
  1. PRISTIQ [Suspect]
     Indication: DEPRESSION
     Dosage: 50 MG, 1X/DAY (DAILY)
     Route: 048
     Dates: start: 20120720, end: 20120930
  2. WELLBUTRIN [Suspect]
     Indication: DEPRESSION
     Dosage: UNK
     Dates: end: 20120720
  3. NUVIGIL [Concomitant]
     Dosage: UNK
  4. CYCLOBENZAPRINE [Concomitant]
     Dosage: 10 MG, AS NEEDED, QHS
  5. AMBIEN [Concomitant]
     Dosage: 10 MG, QHS
  6. DICLOFENAC [Concomitant]
     Dosage: 75 MG, 2X/DAY PRN
  7. XANAX - HS [Concomitant]
     Dosage: UNK

REACTIONS (6)
  - Drug ineffective [Recovered/Resolved]
  - Depression [Recovered/Resolved]
  - Libido decreased [Recovered/Resolved]
  - Headache [Recovered/Resolved]
  - Weight increased [Recovered/Resolved]
  - Blood cholesterol increased [Recovered/Resolved]
